FAERS Safety Report 14014757 (Version 1)
Quarter: 2017Q3

REPORT INFORMATION
  Report Type: Spontaneous
  Country: US (occurrence: US)
  Receive Date: 20170927
  Receipt Date: 20170927
  Transmission Date: 20171128
  Serious: Yes (Other)
  Sender: FDA-Public Use
  Company Number: None

PATIENT
  Age: 18 Year
  Sex: Male
  Weight: 44.1 kg

DRUGS (8)
  1. ABSORICA [Suspect]
     Active Substance: ISOTRETINOIN
     Indication: ACNE
     Dosage: ?          QUANTITY:2 CAPSULE(S);?
     Route: 048
     Dates: start: 20170704, end: 20170812
  2. RETIN-A [Concomitant]
     Active Substance: TRETINOIN
  3. LOCOID [Concomitant]
     Active Substance: HYDROCORTISONE BUTYRATE
  4. ACZONE [Concomitant]
     Active Substance: DAPSONE
  5. MULTI VITAMIN [Concomitant]
     Active Substance: VITAMINS
  6. LEVOFLOXACIN. [Concomitant]
     Active Substance: LEVOFLOXACIN
  7. VITAMIN D [Concomitant]
     Active Substance: CHOLECALCIFEROL
  8. ABSORICA [Suspect]
     Active Substance: ISOTRETINOIN
     Indication: ACNE
     Dosage: ?          QUANTITY:1 CAPSULE(S);?
     Route: 048
     Dates: start: 20170704, end: 20170812

REACTIONS (9)
  - Acne cystic [None]
  - Acne [None]
  - Nodule [None]
  - Eye swelling [None]
  - Pruritus [None]
  - Stress [None]
  - Pain [None]
  - Erythema [None]
  - Inflammation [None]

NARRATIVE: CASE EVENT DATE: 20170720
